FAERS Safety Report 4534459-6 (Version None)
Quarter: 2004Q4

REPORT INFORMATION
  Report Type: 
  Country: None (occurrence: None)
  Receive Date: 20041222
  Receipt Date: 19970214
  Transmission Date: 20050328
  Serious: Yes (Hospitalization)
  Sender: FDA-Public Use
  Company Number: US-SOLVAY-PANC003970004

PATIENT
  Age: 26310 Day
  Sex: Male
  Weight: 53 kg

DRUGS (4)
  1. ANAFRANIL [Concomitant]
     Indication: DYSTHYMIC DISORDER
     Dosage: DAILY DOSE: 100 MG. FREQUENCY:UNKNOWN
     Route: 048
     Dates: start: 19970109, end: 19970205
  2. CREON [Suspect]
     Indication: PANCREATITIS CHRONIC
     Dosage: DAILY DOSE: 3 G. FREQUENCY:UNKNOWN
     Route: 048
     Dates: start: 19961114, end: 19970205
  3. CREON [Suspect]
     Dosage: DAILY DOSE: 3 G. FREQUENCY:UNKNOWN
     Route: 048
     Dates: start: 19970223, end: 19971112
  4. FLAGYL [Concomitant]
     Indication: PROPHYLAXIS AGAINST GASTROINTESTINAL ULCER
     Dosage: DAILY DOSE: UNK. FREQUENCY:UNKNOWN
     Route: 048
     Dates: start: 19970206, end: 19970305

REACTIONS (1)
  - LIVER ABSCESS [None]
